FAERS Safety Report 15482479 (Version 1)
Quarter: 2018Q4

REPORT INFORMATION
  Report Type: Other
  Country: ES (occurrence: ES)
  Receive Date: 20181010
  Receipt Date: 20181010
  Transmission Date: 20190205
  Serious: Yes (Life-Threatening, Hospitalization, Other)
  Sender: FDA-Public Use
  Company Number: ES-APOTEX-2018AP022284

PATIENT
  Age: 28 Year
  Sex: Male

DRUGS (3)
  1. ALPRAZOLAM. [Suspect]
     Active Substance: ALPRAZOLAM
     Indication: INTENTIONAL OVERDOSE
     Dosage: 100 MG, IN TOTAL
     Route: 048
     Dates: start: 20160320, end: 20160320
  2. DIAZEPAM. [Interacting]
     Active Substance: DIAZEPAM
     Indication: INTENTIONAL OVERDOSE
     Dosage: 300 MG, IN TOTAL
     Route: 048
     Dates: start: 20160320, end: 20160320
  3. SINOGAN                            /00038602/ [Interacting]
     Active Substance: LEVOMEPROMAZINE MALEATE
     Indication: INTENTIONAL OVERDOSE
     Dosage: 2 G, IN TOTAL
     Route: 048
     Dates: start: 20160320, end: 20160320

REACTIONS (3)
  - Respiratory depression [Recovered/Resolved]
  - Intentional overdose [Recovered/Resolved]
  - Coma [Recovered/Resolved]

NARRATIVE: CASE EVENT DATE: 20160320
